FAERS Safety Report 17013220 (Version 1)
Quarter: 2019Q4

REPORT INFORMATION
  Report Type: Spontaneous
  Country: US (occurrence: US)
  Receive Date: 20191002
  Receipt Date: 20191002
  Transmission Date: 20200122
  Serious: No
  Sender: FDA-Public Use
  Company Number: None

PATIENT
  Age: 53 Year
  Sex: Male

DRUGS (1)
  1. TREMFYA [Suspect]
     Active Substance: GUSELKUMAB
     Dosage: ?          OTHER FREQUENCY:EVERY 8 WEEKS ;?
     Route: 058
     Dates: start: 20190601

REACTIONS (4)
  - Oropharyngeal pain [None]
  - Rhinorrhoea [None]
  - Respiratory tract congestion [None]
  - Sinusitis [None]

NARRATIVE: CASE EVENT DATE: 20191002
